FAERS Safety Report 9963539 (Version 1)
Quarter: 2014Q1

REPORT INFORMATION
  Report Type: Spontaneous
  Country: US (occurrence: US)
  Receive Date: 20140305
  Receipt Date: 20140305
  Transmission Date: 20141002
  Serious: No
  Sender: FDA-Public Use
  Company Number: US-ABBVIE-13P-163-1120782-00

PATIENT
  Age: 30 Year
  Sex: Female
  Weight: 123.49 kg

DRUGS (1)
  1. HUMIRA [Suspect]
     Indication: PSORIASIS
     Dates: start: 20130708

REACTIONS (5)
  - Dizziness [Recovered/Resolved]
  - Contusion [Unknown]
  - Fatigue [Recovered/Resolved]
  - Dizziness [Recovered/Resolved]
  - Injection site bruising [Recovered/Resolved]
